FAERS Safety Report 4665911-0 (Version None)
Quarter: 2005Q2

REPORT INFORMATION
  Report Type: 
  Country: None (occurrence: None)
  Receive Date: 20050517
  Receipt Date: 20050223
  Transmission Date: 20051028
  Serious: No
  Sender: FDA-Public Use
  Company Number: S05-USA-00958-01

PATIENT
  Age: 83 Year
  Sex: Female

DRUGS (8)
  1. NAMENDA [Suspect]
     Indication: DEMENTIA
     Dosage: 15 MG QD PO
     Route: 048
     Dates: start: 20050215, end: 20050221
  2. NAMENDA [Suspect]
     Indication: DEMENTIA
     Dosage: 10 MG BID PO
     Route: 048
     Dates: start: 20050222
  3. NAMENDA [Suspect]
     Indication: DEMENTIA
     Dosage: 5 MG QD PO
     Route: 048
     Dates: start: 20050201, end: 20050207
  4. NAMENDA [Suspect]
     Indication: DEMENTIA
     Dosage: 5 MG BID PO
     Route: 048
     Dates: start: 20050208, end: 20050214
  5. AMIODARONE HYDROCHLORIDE [Concomitant]
  6. PLAVIX [Concomitant]
  7. COLACE (DOCUSATE SODIUM) [Concomitant]
  8. VITAMINS [Concomitant]

REACTIONS (2)
  - ASTHENIA [None]
  - BALANCE DISORDER [None]
